FAERS Safety Report 14855939 (Version 2)
Quarter: 2018Q2

REPORT INFORMATION
  Report Type: Spontaneous
  Country: US (occurrence: US)
  Receive Date: 20180507
  Receipt Date: 20180522
  Transmission Date: 20180711
  Serious: Yes (Hospitalization)
  Sender: FDA-Public Use
  Company Number: US-ACTELION-A-NJ2018-171661

PATIENT
  Age: 18 Year
  Sex: Male

DRUGS (1)
  1. VELETRI [Suspect]
     Active Substance: EPOPROSTENOL
     Indication: PULMONARY ARTERIAL HYPERTENSION
     Dosage: 141 NG/KG, PER MIN
     Route: 042
     Dates: start: 20171213

REACTIONS (1)
  - Lung transplant [Unknown]

NARRATIVE: CASE EVENT DATE: 20180425
